FAERS Safety Report 16165290 (Version 1)
Quarter: 2019Q2

REPORT INFORMATION
  Report Type: Spontaneous
  Country: FR (occurrence: FR)
  Receive Date: 20190405
  Receipt Date: 20190405
  Transmission Date: 20190711
  Serious: Yes (Hospitalization)
  Sender: FDA-Public Use
  Company Number: FR-NAPPMUNDI-GBR-2013-0016300

PATIENT
  Age: 68 Year
  Sex: Male
  Weight: 65 kg

DRUGS (14)
  1. FLAGYL [Concomitant]
     Active Substance: METRONIDAZOLE\METRONIDAZOLE HYDROCHLORIDE
  2. MICARDIS [Concomitant]
     Active Substance: TELMISARTAN
  3. LYRICA [Concomitant]
     Active Substance: PREGABALIN
  4. DAFALGAN [Concomitant]
     Active Substance: ACETAMINOPHEN
  5. SONDALIS HP [Concomitant]
     Active Substance: AMINO ACIDS\DEXTROSE\ELECTROLYTES NOS\SOYBEAN OIL\VITAMINS
  6. OXYNORM 10MG/ML SOLUTION INJECTABLE [Suspect]
     Active Substance: OXYCODONE HYDROCHLORIDE
     Indication: PAIN
     Dosage: 10 MG, Q1H WAS ADMINISTERED INSTEAD OF 1 MG Q1H
     Route: 042
     Dates: start: 20130125
  7. SOLU-MEDROL [Concomitant]
     Active Substance: METHYLPREDNISOLONE SODIUM SUCCINATE
  8. ACUPAN [Concomitant]
     Active Substance: NEFOPAM HYDROCHLORIDE
  9. LEVOCARNIL [Concomitant]
     Active Substance: LEVOCARNITINE
  10. FRESUBIN [Concomitant]
     Active Substance: AMINO ACIDS\DEXTROSE\ELECTROLYTES NOS\SOYBEAN OIL\VITAMINS
  11. OXYNORM 10MG/ML SOLUTION INJECTABLE [Suspect]
     Active Substance: OXYCODONE HYDROCHLORIDE
     Dosage: 10 MG, Q1H
     Route: 042
     Dates: start: 20130117, end: 20130121
  12. LEVOTHYROX [Concomitant]
     Active Substance: LEVOTHYROXINE
  13. INEXIUM                            /01479302/ [Concomitant]
     Active Substance: ESOMEPRAZOLE MAGNESIUM
  14. HALDOL [Concomitant]
     Active Substance: HALOPERIDOL
     Dosage: UNK
     Dates: start: 20130123

REACTIONS (5)
  - Respiratory depression [Recovered/Resolved]
  - Incorrect dose administered [Recovered/Resolved]
  - Hypertension [Recovered/Resolved]
  - Accidental overdose [Recovered/Resolved]
  - Somnolence [Recovered/Resolved]

NARRATIVE: CASE EVENT DATE: 20130125
